FAERS Safety Report 23330160 (Version 1)
Quarter: 2023Q4

REPORT INFORMATION
  Report Type: Spontaneous
  Country: GB (occurrence: GB)
  Receive Date: 20231222
  Receipt Date: 20231222
  Transmission Date: 20240110
  Serious: Yes (Disabling, Other)
  Sender: FDA-Public Use
  Company Number: None

PATIENT
  Sex: Female

DRUGS (1)
  1. LEVOTHYROXINE [Suspect]
     Active Substance: LEVOTHYROXINE
     Indication: Hypothyroidism
     Dosage: AT NIGHT

REACTIONS (5)
  - Depression suicidal [Unknown]
  - Anxiety [Unknown]
  - Suicidal ideation [Unknown]
  - Tearfulness [Unknown]
  - Depressed mood [Unknown]
